FAERS Safety Report 7314178-3 (Version None)
Quarter: 2011Q1

REPORT INFORMATION
  Report Type: 
  Country: None (occurrence: None)
  Receive Date: 20110225
  Receipt Date: 20100526
  Transmission Date: 20110831
  Serious: No
  Sender: FDA-Public Use
  Company Number: US-MYLANLABS-2010S1009462

PATIENT
  Age: 32 Year
  Sex: Male

DRUGS (1)
  1. AMNESTEEM [Suspect]
     Indication: ACNE
     Route: 048
     Dates: start: 20100512, end: 20100526

REACTIONS (3)
  - ABNORMAL SENSATION IN EYE [None]
  - VISION BLURRED [None]
  - ARTHRALGIA [None]
